FAERS Safety Report 18645430 (Version 1)
Quarter: 2020Q4

REPORT INFORMATION
  Report Type: Other
  Country: CA (occurrence: CA)
  Receive Date: 20201222
  Receipt Date: 20201222
  Transmission Date: 20210114
  Serious: Yes (Death)
  Sender: FDA-Public Use
  Company Number: CA-CELLTRION INC.-2020CA034081

PATIENT

DRUGS (13)
  1. BENDAMUSTINE HYDROCHLORIDE. [Concomitant]
     Active Substance: BENDAMUSTINE HYDROCHLORIDE
     Indication: NON-HODGKIN^S LYMPHOMA
     Route: 065
  2. PREDNISONE. [Concomitant]
     Active Substance: PREDNISONE
     Indication: NON-HODGKIN^S LYMPHOMA
     Dosage: 50 MILLIGRAM
     Route: 048
  3. REVLIMID [Suspect]
     Active Substance: LENALIDOMIDE
     Indication: PRODUCT USED FOR UNKNOWN INDICATION
     Route: 048
  4. TRAMADOL. [Concomitant]
     Active Substance: TRAMADOL
     Indication: PAIN
     Dosage: UNK, 2 EVERY 1 DAYS
     Route: 065
  5. ACETAMINOPHEN. [Concomitant]
     Active Substance: ACETAMINOPHEN
     Indication: PREMEDICATION
     Dosage: 650 MILLIGRAM
     Route: 048
  6. RITUXIMAB (UNKNOWN) [Suspect]
     Active Substance: RITUXIMAB
     Indication: NON-HODGKIN^S LYMPHOMA
     Dosage: 726 MILLIGRAM, 1 EVERY 3 MONTHS
     Route: 041
  7. RITUXIMAB (UNKNOWN) [Suspect]
     Active Substance: RITUXIMAB
     Dosage: 732 MILLIGRAM, 1 EVERY 3 MONTHS
     Route: 041
  8. ALLOPURINOL. [Concomitant]
     Active Substance: ALLOPURINOL
     Indication: PRODUCT USED FOR UNKNOWN INDICATION
     Route: 048
  9. DIPHENHYDRAMINE. [Suspect]
     Active Substance: DIPHENHYDRAMINE
     Indication: PREMEDICATION
     Dosage: 50 MILLIGRAM
     Route: 041
  10. DIPHENHYDRAMINE. [Suspect]
     Active Substance: DIPHENHYDRAMINE
     Dosage: 50 MILLIGRAM
     Route: 041
  11. AMLODIPINE BESILATE [Concomitant]
     Active Substance: AMLODIPINE BESYLATE
     Indication: PRODUCT USED FOR UNKNOWN INDICATION
     Route: 065
  12. RITUXIMAB (UNKNOWN) [Suspect]
     Active Substance: RITUXIMAB
     Dosage: 726 MILLIGRAM, 1 EVERY 4 WEEKS
     Route: 041
  13. DIPHENHYDRAMINE. [Suspect]
     Active Substance: DIPHENHYDRAMINE
     Dosage: 25 MILLIGRAM
     Route: 041

REACTIONS (21)
  - Blood pressure systolic increased [Fatal]
  - Cough [Fatal]
  - Erythema [Fatal]
  - Heart rate decreased [Fatal]
  - Abdominal discomfort [Fatal]
  - Weight increased [Fatal]
  - Anxiety [Fatal]
  - Angiopathy [Fatal]
  - Chondrosarcoma metastatic [Fatal]
  - Infusion site extravasation [Fatal]
  - Vein discolouration [Fatal]
  - Fatigue [Fatal]
  - Nasopharyngitis [Fatal]
  - Neoplasm [Fatal]
  - Tremor [Fatal]
  - Somnolence [Fatal]
  - Blood pressure increased [Fatal]
  - Hypotension [Fatal]
  - Incorrect dose administered [Fatal]
  - Flushing [Fatal]
  - Infusion related reaction [Fatal]
